FAERS Safety Report 9911613 (Version 4)
Quarter: 2015Q1

REPORT INFORMATION
  Report Type: Spontaneous
  Country: JP (occurrence: JP)
  Receive Date: 20140219
  Receipt Date: 20150114
  Transmission Date: 20150721
  Serious: Yes (Hospitalization)
  Sender: FDA-Public Use
  Company Number: PHHY2014JP018790

PATIENT
  Age: 80 Year
  Sex: Female
  Weight: 38 kg

DRUGS (4)
  1. DICLOFENAC [Suspect]
     Active Substance: DICLOFENAC
     Indication: BACK PAIN
     Dosage: 75 MG, QD
     Route: 048
  2. ANTIHYPERTENSIVE DRUGS [Concomitant]
     Active Substance: UNSPECIFIED INGREDIENT
     Indication: HYPERTENSION
     Route: 048
  3. LOXOPROFEN [Suspect]
     Active Substance: LOXOPROFEN
     Indication: BACK PAIN
     Dosage: 180 MG, DAILY
     Route: 048
  4. MAGNESIUM OXIDE. [Suspect]
     Active Substance: MAGNESIUM OXIDE
     Indication: CONSTIPATION
     Dosage: 1980 MG, QD
     Route: 048

REACTIONS (16)
  - Stress cardiomyopathy [Recovering/Resolving]
  - Hypermagnesaemia [Recovering/Resolving]
  - Renal disorder [Recovered/Resolved]
  - Sinus bradycardia [Unknown]
  - Gait disturbance [Unknown]
  - Vomiting [Unknown]
  - Diarrhoea [Recovering/Resolving]
  - Altered state of consciousness [Recovered/Resolved]
  - Hypocalcaemia [Unknown]
  - Blood pressure decreased [Recovering/Resolving]
  - Chest pain [Recovered/Resolved]
  - Blood creatinine increased [Recovering/Resolving]
  - Dysstasia [Recovering/Resolving]
  - Decreased appetite [Recovered/Resolved]
  - Dizziness [Recovering/Resolving]
  - Muscular weakness [Unknown]

NARRATIVE: CASE EVENT DATE: 201206
